FAERS Safety Report 4334093-7 (Version None)
Quarter: 2004Q2

REPORT INFORMATION
  Report Type: 
  Country: None (occurrence: None)
  Receive Date: 20040402
  Receipt Date: 20040318
  Transmission Date: 20050107
  Serious: Yes (Hospitalization)
  Sender: FDA-Public Use
  Company Number: S04-SWI-00380-01

PATIENT
  Age: 79 Year
  Sex: Female

DRUGS (8)
  1. CIPRALEX (ESCITALOPRAM) [Suspect]
     Dosage: 5 MG QD PO
     Route: 048
     Dates: start: 20031205, end: 20031211
  2. CIRPALEX (ESCITALOPRAM) [Suspect]
     Dosage: 10 MG QD PO
     Route: 048
     Dates: start: 20031212, end: 20031215
  3. BETOLVEX (CYANOCOBALAMIN-TANNIN COMPLEX) [Concomitant]
  4. HALDOL [Concomitant]
  5. INSULIN MIXTARD (INSULIN INJECTION, ISOPHANE) [Concomitant]
  6. NORVASC [Concomitant]
  7. CONVULEX ^BYK GULDEN^ (VALPROATE SODIUM) [Concomitant]
  8. ORFIRIL ^DESITIN^ (VAPROATE SODIUM) [Concomitant]

REACTIONS (4)
  - HAEMATOCRIT DECREASED [None]
  - HAEMOGLOBIN DECREASED [None]
  - THROMBOCYTOPENIA [None]
  - WHITE BLOOD CELL COUNT DECREASED [None]
